FAERS Safety Report 8197875-X (Version None)
Quarter: 2012Q1

REPORT INFORMATION
  Report Type: 
  Country: None (occurrence: None)
  Receive Date: 20120223
  Receipt Date: 20110117
  Transmission Date: 20120608
  Serious: Yes (Death)
  Sender: FDA-Public Use
  Company Number: DKLU1067874

PATIENT
  Age: 16 Year
  Sex: Male

DRUGS (2)
  1. METHYLENEDIOXYMETHAMPHETAMINE (METHYLENEDIOXYMETHAMPHETAMINE) [Suspect]
     Indication: PRODUCT USED FOR UNKNOWN INDICATION
  2. DESOXYN [Suspect]
     Indication: PRODUCT USED FOR UNKNOWN INDICATION
     Dosage: ORAL
     Route: 048

REACTIONS (18)
  - ENCEPHALOPATHY [None]
  - HYPOXIC-ISCHAEMIC ENCEPHALOPATHY [None]
  - MULTI-ORGAN FAILURE [None]
  - UNRESPONSIVE TO STIMULI [None]
  - HYPOGLYCAEMIA [None]
  - HYPOTENSION [None]
  - ACCIDENTAL DEATH [None]
  - MUSCLE RIGIDITY [None]
  - HAEMODIALYSIS [None]
  - RHABDOMYOLYSIS [None]
  - SHOCK [None]
  - DISSEMINATED INTRAVASCULAR COAGULATION [None]
  - MULTIPLE DRUG OVERDOSE [None]
  - HYPERTHERMIA MALIGNANT [None]
  - SEROTONIN SYNDROME [None]
  - TREMOR [None]
  - RENAL FAILURE [None]
  - HEPATORENAL FAILURE [None]
